FAERS Safety Report 4437633-2 (Version None)
Quarter: 2004Q3

REPORT INFORMATION
  Report Type: 
  Country: None (occurrence: None)
  Receive Date: 20040827
  Receipt Date: 20040819
  Transmission Date: 20050211
  Serious: Yes (Life-Threatening, Hospitalization)
  Sender: FDA-Public Use
  Company Number: 2004229460IT

PATIENT
  Age: 63 Year
  Sex: Male

DRUGS (13)
  1. DOXORUBICIN HYDROCHLORIDE [Suspect]
     Dosage: 25, CYCLE 1,
     Dates: start: 20040602
  2. ETOPOSIDE [Suspect]
     Dosage: 396 MG, PRN,
     Dates: start: 20040602
  3. DARBEPOETIN ALFA (DARBEPOETIN ALFA) [Suspect]
     Indication: ANAEMIA OF MALIGNANT DISEASE
     Dosage: BLINDED CYCLE 1, SUBCUTANEOUS
     Route: 058
     Dates: start: 20040601
  4. NEUPOGEN [Suspect]
     Dosage: 5 UG/KG, CYCLE 1
     Dates: start: 20040609, end: 20040618
  5. CYCLOPHOSPHAMIDE [Suspect]
     Dosage: 650 MG, CYCLE 1
     Dates: start: 20040602
  6. PROCARBAZINE (PROCARBAZINE) [Suspect]
     Dosage: 700 MG, PRN
     Dates: start: 20040602
  7. PREDNISONE [Suspect]
     Dosage: 640 MG, BID
     Dates: start: 20040602
  8. BLEOMYCIN SULFATE [Suspect]
     Dosage: 10 MG, CYCLIC
     Dates: start: 20040609
  9. ITRACONAZOLE [Concomitant]
  10. INSULIN [Concomitant]
  11. ENALAPRIL MALEATE [Concomitant]
  12. OMEPRAZOLE [Concomitant]
  13. CIPROFLOXACIN [Concomitant]

REACTIONS (4)
  - HAEMOGLOBIN DECREASED [None]
  - HYPERCOAGULATION [None]
  - MALIGNANT NEOPLASM PROGRESSION [None]
  - PULMONARY EMBOLISM [None]
